FAERS Safety Report 5593231-9 (Version None)
Quarter: 2008Q1

REPORT INFORMATION
  Report Type: 
  Country: None (occurrence: None)
  Receive Date: 20080116
  Receipt Date: 20080109
  Transmission Date: 20080703
  Serious: Yes (Life-Threatening, Hospitalization)
  Sender: FDA-Public Use
  Company Number: JP-AVENTIS-200713469JP

PATIENT
  Age: 51 Year
  Sex: Male
  Weight: 53.7 kg

DRUGS (8)
  1. LANTUS [Suspect]
     Indication: DIABETES MELLITUS
     Dosage: DOSE: 5-0-0-4 UNITS/DAY
     Route: 058
     Dates: start: 20071019, end: 20071109
  2. LANTUS [Suspect]
     Route: 058
     Dates: start: 20071123, end: 20071205
  3. OPTICLIK (INSULIN INJECTION PEN) [Suspect]
  4. NOVOLIN R [Concomitant]
     Indication: DIABETES MELLITUS
     Dosage: DOSE: 4-4-5 UNITS/DAY
     Route: 058
     Dates: start: 20070828
  5. NOVORAPID [Concomitant]
     Indication: DIABETES MELLITUS
  6. NOVOLIN N [Concomitant]
     Indication: DIABETES MELLITUS
     Dates: end: 20071018
  7. NOVOLIN N [Concomitant]
     Dates: start: 20071109, end: 20071122
  8. NOVOLIN N [Concomitant]
     Dates: start: 20071206

REACTIONS (3)
  - ANOREXIA [None]
  - JAUNDICE [None]
  - MALAISE [None]
